FAERS Safety Report 7725391-5 (Version None)
Quarter: 2011Q3

REPORT INFORMATION
  Report Type: 
  Country: None (occurrence: None)
  Receive Date: 20110902
  Receipt Date: 20110829
  Transmission Date: 20111222
  Serious: No
  Sender: FDA-Public Use
  Company Number: US-PFIZER INC-2011200693

PATIENT
  Sex: Female
  Weight: 49.433 kg

DRUGS (7)
  1. NAPROXEN (ALEVE) [Concomitant]
     Indication: PAIN IN EXTREMITY
     Dosage: UNK
  2. PRISTIQ [Suspect]
     Indication: DEPRESSION
     Dosage: 50 MG, 1X/DAY
     Route: 048
     Dates: start: 20110601, end: 20110801
  3. ASCORBIC ACID [Concomitant]
     Indication: ANTIOXIDANT THERAPY
     Dosage: UNK
  4. LIPOIC ACID [Concomitant]
     Indication: ANTIOXIDANT THERAPY
     Dosage: UNK
  5. FOLIC ACID [Concomitant]
     Indication: ANTIOXIDANT THERAPY
     Dosage: UNK
  6. GRAPE SEED EXTRACT [Concomitant]
     Indication: ANTIOXIDANT THERAPY
     Dosage: UNK
  7. GLUTATHIONE [Concomitant]
     Indication: ANTIOXIDANT THERAPY
     Dosage: UNK

REACTIONS (5)
  - VISION BLURRED [None]
  - RESTLESSNESS [None]
  - HEADACHE [None]
  - COLD SWEAT [None]
  - FEELING COLD [None]
